FAERS Safety Report 4570088-6 (Version None)
Quarter: 2005Q1

REPORT INFORMATION
  Report Type: 
  Country: None (occurrence: None)
  Receive Date: 20050131
  Receipt Date: 20050119
  Transmission Date: 20050727
  Serious: Yes (Death, Hospitalization)
  Sender: FDA-Public Use
  Company Number: 2005AL000249

PATIENT
  Age: 45 Year
  Sex: Male

DRUGS (4)
  1. SERAX [Suspect]
     Indication: GENERALISED ANXIETY DISORDER
     Dosage: 50 MG;TID;PO
     Route: 048
  2. EFFEXOR [Suspect]
     Indication: GENERALISED ANXIETY DISORDER
     Dosage: SEE IMAGE
     Route: 048
     Dates: start: 20030901, end: 20040501
  3. EFFEXOR [Suspect]
     Indication: GENERALISED ANXIETY DISORDER
     Dosage: SEE IMAGE
     Route: 048
     Dates: start: 20040501, end: 20040601
  4. STABLON ({NULL}) [Suspect]
     Indication: GENERALISED ANXIETY DISORDER
     Dosage: X1;PO
     Route: 048
     Dates: start: 20040601

REACTIONS (4)
  - CARDIAC ARREST [None]
  - DRUG INEFFECTIVE [None]
  - HYPERTENSION [None]
  - SUDDEN DEATH [None]
